FAERS Safety Report 13269210 (Version 1)
Quarter: 2017Q1

REPORT INFORMATION
  Report Type: Other
  Country: DK (occurrence: DK)
  Receive Date: 20170224
  Receipt Date: 20170224
  Transmission Date: 20170428
  Serious: Yes (Hospitalization)
  Sender: FDA-Public Use
  Company Number: DK-HIKMA PHARMACEUTICALS CO. LTD-2017DK001928

PATIENT

DRUGS (3)
  1. REMSIMA [Suspect]
     Active Substance: INFLIXIMAB
     Indication: ANKYLOSING SPONDYLITIS
     Dosage: 210 MG WEEKS 0, 2, 6, +8
     Route: 042
     Dates: start: 20150721, end: 20150721
  2. REMICADE [Suspect]
     Active Substance: INFLIXIMAB
     Indication: ANKYLOSING SPONDYLITIS
     Dosage: 210 MG WEEKS 0, 2, 6, +8.
     Route: 042
     Dates: start: 20051012, end: 20150720
  3. REMSIMA [Suspect]
     Active Substance: INFLIXIMAB
     Dosage: 210 MG WEEKS 0, 2, 6, +8
     Route: 042
     Dates: start: 20161030, end: 20161030

REACTIONS (2)
  - Bone giant cell tumour [Recovered/Resolved]
  - Product substitution issue [Unknown]

NARRATIVE: CASE EVENT DATE: 20160919
